FAERS Safety Report 12291108 (Version 3)
Quarter: 2016Q2

REPORT INFORMATION
  Report Type: Spontaneous
  Country: US (occurrence: US)
  Receive Date: 20160421
  Receipt Date: 20160513
  Transmission Date: 20160815
  Serious: Yes (Hospitalization, Other)
  Sender: FDA-Public Use
  Company Number: US-AMGEN-USASP2016047972

PATIENT
  Age: 78 Year
  Sex: Female

DRUGS (12)
  1. NEULASTA [Suspect]
     Active Substance: PEGFILGRASTIM
     Indication: PRODUCT USED FOR UNKNOWN INDICATION
     Dosage: UNK
     Route: 065
  2. CALCIUM CARBONATE. [Concomitant]
     Active Substance: CALCIUM CARBONATE
     Dosage: 1000 MG, BID
     Route: 048
  3. FULVESTRANT [Concomitant]
     Active Substance: FULVESTRANT
     Dosage: 500 MG, D1, 15, 29 THEN Q4WEEK
     Route: 030
     Dates: start: 20160117
  4. IBRANCE [Suspect]
     Active Substance: PALBOCICLIB
     Indication: SMALL INTESTINAL OBSTRUCTION
     Dosage: 100 MG, 28 DAY SUPPLY
     Route: 065
  5. CHOLECALCIFEROL [Concomitant]
     Active Substance: CHOLECALCIFEROL
     Dosage: 400 UNIT, QD, 2 TABLET OF 400 DAILY
     Route: 048
  6. COMPAZINE [Concomitant]
     Active Substance: PROCHLORPERAZINE MALEATE
     Dosage: 5 MG, QID, DAILY
     Route: 048
  7. CYTOXAN [Concomitant]
     Active Substance: CYCLOPHOSPHAMIDE
     Indication: METASTASES TO PERITONEUM
     Dosage: 600 MG/M2, UNK
     Route: 065
     Dates: start: 20140828, end: 20141022
  8. NEUPOGEN [Suspect]
     Active Substance: FILGRASTIM
     Indication: PRODUCT USED FOR UNKNOWN INDICATION
     Dosage: UNK
     Route: 065
     Dates: start: 20140828
  9. IBRANCE [Suspect]
     Active Substance: PALBOCICLIB
     Dosage: 125 MG, QD, PO DAILY (DAYS 1-21 OF 28 DAY CYCLE)
     Route: 048
     Dates: start: 20160117
  10. DOCETAXEL. [Concomitant]
     Active Substance: DOCETAXEL
     Indication: METASTASES TO PERITONEUM
     Dosage: 75 MG/M2, UNK
     Route: 065
     Dates: start: 20140828, end: 20141022
  11. POLYETHYLENE GLYCOL 3350. [Concomitant]
     Active Substance: POLYETHYLENE GLYCOL 3350
     Dosage: UNK, 1 PACK DAILY
     Route: 048
  12. ACETAMINOPHEN. [Concomitant]
     Active Substance: ACETAMINOPHEN
     Dosage: 650 MG, QD, DAILY
     Route: 048

REACTIONS (27)
  - Abdominal distension [Unknown]
  - Abdominal pain [Recovered/Resolved]
  - Small intestinal obstruction [Unknown]
  - Febrile neutropenia [Unknown]
  - Weight increased [Unknown]
  - Swelling [Unknown]
  - Liver disorder [Unknown]
  - Osteopenia [Unknown]
  - Carotid artery occlusion [Unknown]
  - Thyroid mass [Recovering/Resolving]
  - Weight decreased [Unknown]
  - Dizziness [Recovered/Resolved]
  - Blood pressure increased [Unknown]
  - Sleep disorder [Unknown]
  - Visual acuity reduced [Unknown]
  - Diarrhoea [Unknown]
  - Clostridium difficile colitis [Unknown]
  - Metastases to peritoneum [Unknown]
  - Anxiety [Unknown]
  - Abdominal discomfort [Unknown]
  - Hyperaemia [Unknown]
  - Fatigue [Unknown]
  - Back pain [Unknown]
  - Neuropathy peripheral [Unknown]
  - Hot flush [Unknown]
  - Osteoporosis [Unknown]
  - Constipation [Unknown]

NARRATIVE: CASE EVENT DATE: 20140828
